FAERS Safety Report 21119314 (Version 1)
Quarter: 2022Q3

REPORT INFORMATION
  Report Type: Spontaneous
  Country: CN (occurrence: CN)
  Receive Date: 20220722
  Receipt Date: 20220722
  Transmission Date: 20221026
  Serious: Yes (Other)
  Sender: FDA-Public Use
  Company Number: CN-PFIZER INC-PV202200019435

PATIENT
  Age: 34 Year
  Sex: Female

DRUGS (7)
  1. METHOTREXATE SODIUM [Suspect]
     Active Substance: METHOTREXATE SODIUM
     Indication: Choriocarcinoma
     Dosage: 150 MG, D8
     Route: 040
  2. METHOTREXATE SODIUM [Suspect]
     Active Substance: METHOTREXATE SODIUM
     Dosage: 1450-1500 MG CIV12 H, D8
     Route: 041
  3. ETOPOSIDE [Suspect]
     Active Substance: ETOPOSIDE
     Indication: Choriocarcinoma
     Dosage: 160 MG, D1
  4. ETOPOSIDE [Suspect]
     Active Substance: ETOPOSIDE
     Dosage: 160 MG, D8
  5. CISPLATIN [Suspect]
     Active Substance: CISPLATIN
     Indication: Choriocarcinoma
     Dosage: 120 MG, D1
  6. ACTINOMYCIN D [Suspect]
     Active Substance: DACTINOMYCIN
     Indication: Choriocarcinoma
     Dosage: 0.5 MG
  7. LEUCOVORIN CALCIUM [Concomitant]
     Active Substance: LEUCOVORIN CALCIUM

REACTIONS (3)
  - Myelosuppression [Unknown]
  - Granulocyte count decreased [Unknown]
  - Anaemia [Unknown]
